FAERS Safety Report 4698499-9 (Version None)
Quarter: 2005Q2

REPORT INFORMATION
  Report Type: 
  Country: None (occurrence: None)
  Receive Date: 20050622
  Receipt Date: 20050609
  Transmission Date: 20051028
  Serious: Yes (Other)
  Sender: FDA-Public Use
  Company Number: 2005088294

PATIENT
  Sex: Female

DRUGS (5)
  1. ZOLOFT [Suspect]
     Indication: POSTPARTUM DEPRESSION
     Dosage: 75 MG (1 D) ORAL
     Route: 048
     Dates: start: 19990101
  2. SEROQUEL [Suspect]
     Indication: ILL-DEFINED DISORDER
     Dosage: ORAL
     Route: 048
     Dates: end: 20040101
  3. ALL OTHER THERAPEUTIC PRODUCTS [Concomitant]
  4. SYNTHROID [Concomitant]
  5. ORTHO EVRA (ETHINYLESTRADIOL NORELGESTROMIN) [Concomitant]

REACTIONS (21)
  - ABORTION SPONTANEOUS [None]
  - AGITATION [None]
  - ALCOHOL USE [None]
  - BIPOLAR DISORDER [None]
  - CAESAREAN SECTION [None]
  - DEPRESSION [None]
  - DRUG EXPOSURE DURING PREGNANCY [None]
  - FEELING ABNORMAL [None]
  - HALLUCINATION, AUDITORY [None]
  - HYPERPHAGIA [None]
  - HYPERSOMNIA [None]
  - INTENTIONAL SELF-INJURY [None]
  - LACERATION [None]
  - MOOD SWINGS [None]
  - PREGNANCY [None]
  - PREMATURE LABOUR [None]
  - PSYCHOMOTOR HYPERACTIVITY [None]
  - SUICIDAL IDEATION [None]
  - SUICIDE ATTEMPT [None]
  - WEIGHT DECREASED [None]
  - WEIGHT INCREASED [None]
